FAERS Safety Report 12840818 (Version 3)
Quarter: 2016Q4

REPORT INFORMATION
  Report Type: Spontaneous
  Country: NL (occurrence: NL)
  Receive Date: 20161012
  Receipt Date: 20161017
  Transmission Date: 20170207
  Serious: Yes (Other)
  Sender: FDA-Public Use
  Company Number: NL-TEVA-698772ROM

PATIENT
  Age: 55 Year
  Sex: Female

DRUGS (1)
  1. DESMOPRESSINE-ACETAAT TEVA 0.1 MG, TABLETS [Suspect]
     Active Substance: DESMOPRESSIN ACETATE
     Indication: PROPHYLAXIS
     Dosage: MAINTENANCE DOSE OF 0.1MG OR 0.2 MG ONCE DAILY
     Route: 048
     Dates: end: 201609

REACTIONS (12)
  - Product substitution issue [Unknown]
  - Diarrhoea [Unknown]
  - Blood sodium decreased [Not Recovered/Not Resolved]
  - Drug effect decreased [Unknown]
  - Blood sodium increased [Recovered/Resolved]
  - Hypernatraemia [Recovered/Resolved]
  - Polyuria [Not Recovered/Not Resolved]
  - Pollakiuria [Not Recovered/Not Resolved]
  - Polyuria [Not Recovered/Not Resolved]
  - Micturition disorder [Not Recovered/Not Resolved]
  - Overdose [Unknown]
  - Daydreaming [Recovered/Resolved]

NARRATIVE: CASE EVENT DATE: 201609
